FAERS Safety Report 17114063 (Version 4)
Quarter: 2020Q1

REPORT INFORMATION
  Report Type: Spontaneous
  Country: JP (occurrence: JP)
  Receive Date: 20191205
  Receipt Date: 20200114
  Transmission Date: 20200409
  Serious: Yes (Death, Other)
  Sender: FDA-Public Use
  Company Number: JP-ABBVIE-19K-087-3181036-00

PATIENT
  Age: 71 Year
  Sex: Male

DRUGS (11)
  1. MEROPENEM HYDRATE [Concomitant]
     Active Substance: MEROPENEM
     Indication: PLATELET COUNT DECREASED
  2. IBRUTINIB [Concomitant]
     Active Substance: IBRUTINIB
     Indication: CHRONIC LYMPHOCYTIC LEUKAEMIA
     Route: 048
     Dates: start: 20191122
  3. LOXOPROFEN SODIUM HYDRATE [Concomitant]
     Active Substance: LOXOPROFEN SODIUM DIHYDRATE
     Indication: PRODUCT USED FOR UNKNOWN INDICATION
  4. MEROPENEM HYDRATE [Concomitant]
     Active Substance: MEROPENEM
     Indication: NEUTROPHIL COUNT DECREASED
     Dates: start: 20191122
  5. FUROSEMIDE. [Concomitant]
     Active Substance: FUROSEMIDE
     Indication: PROPHYLAXIS
  6. ALLOPURINOL. [Concomitant]
     Active Substance: ALLOPURINOL
     Indication: PROPHYLAXIS
  7. VANCOMYCIN HYDROCHLORIDE. [Concomitant]
     Active Substance: VANCOMYCIN HYDROCHLORIDE
     Indication: PLATELET COUNT DECREASED
     Dates: start: 20191122
  8. MEROPENEM HYDRATE [Concomitant]
     Active Substance: MEROPENEM
     Indication: ANAEMIA
  9. VANCOMYCIN HYDROCHLORIDE. [Concomitant]
     Active Substance: VANCOMYCIN HYDROCHLORIDE
     Indication: ANAEMIA
  10. VENCLEXTA [Suspect]
     Active Substance: VENETOCLAX
     Indication: CHRONIC LYMPHOCYTIC LEUKAEMIA
     Route: 048
     Dates: start: 20191127, end: 20191202
  11. VANCOMYCIN HYDROCHLORIDE. [Concomitant]
     Active Substance: VANCOMYCIN HYDROCHLORIDE
     Indication: NEUTROPHIL COUNT DECREASED

REACTIONS (6)
  - Depressed level of consciousness [Not Recovered/Not Resolved]
  - Hypernatraemia [Not Recovered/Not Resolved]
  - Gastrointestinal haemorrhage [Not Recovered/Not Resolved]
  - Renal tubular disorder [Unknown]
  - Chronic lymphocytic leukaemia [Fatal]
  - Sepsis [Fatal]

NARRATIVE: CASE EVENT DATE: 2019
